FAERS Safety Report 8839366 (Version 1)
Quarter: 2012Q4

REPORT INFORMATION
  Report Type: Spontaneous
  Country: US (occurrence: None)
  Receive Date: 20121011
  Receipt Date: 20121011
  Transmission Date: 20130627
  Serious: Yes (Life-Threatening)
  Sender: FDA-Public Use
  Company Number: None

PATIENT
  Age: 72 Year
  Sex: Female

DRUGS (1)
  1. LIPODOX [Suspect]
     Indication: BREAST CANCER
     Dosage: 68.6 mL/hr over 4 hours
     Route: 041
     Dates: start: 20121001, end: 20121001

REACTIONS (2)
  - Respiratory distress [None]
  - Infusion related reaction [None]
